FAERS Safety Report 22270704 (Version 1)
Quarter: 2023Q2

REPORT INFORMATION
  Report Type: Spontaneous
  Country: AU (occurrence: AU)
  Receive Date: 20230501
  Receipt Date: 20230501
  Transmission Date: 20230722
  Serious: Yes (Death)
  Sender: FDA-Public Use
  Company Number: AU-WOODWARD-2023-AU-000110

PATIENT
  Age: 75 Year
  Sex: Female

DRUGS (8)
  1. RABEPRAZOLE SODIUM [Suspect]
     Active Substance: RABEPRAZOLE SODIUM
     Indication: Product used for unknown indication
     Dosage: (20 MG,1 D)
     Route: 048
  2. CARVEDILOL [Suspect]
     Active Substance: CARVEDILOL
     Indication: Product used for unknown indication
     Dosage: (12.5 MG,1 D)
     Route: 065
  3. ROSUVASTATIN CALCIUM [Suspect]
     Active Substance: ROSUVASTATIN CALCIUM
     Dosage: (10 MG,1 D)
     Route: 065
  4. ASCORBIC ACID\FERROUS SULFATE [Suspect]
     Active Substance: ASCORBIC ACID\FERROUS SULFATE
     Dosage: DOSE UNKNOWN (1 D)
     Route: 065
  5. FUROSEMIDE [Suspect]
     Active Substance: FUROSEMIDE
     Dosage: (20 MG,1 D)
     Route: 065
  6. SPIRONOLACTONE [Suspect]
     Active Substance: SPIRONOLACTONE
     Dosage: (100 MG,1 D)
     Route: 065
  7. TADALAFIL [Suspect]
     Active Substance: TADALAFIL
     Dosage: (20 MG,1 D)
     Route: 065
  8. AMBRISENTAN [Suspect]
     Active Substance: AMBRISENTAN
     Dosage: (10 MG,1 D)
     Route: 065

REACTIONS (1)
  - Death [Fatal]
